FAERS Safety Report 6678985-2 (Version None)
Quarter: 2010Q2

REPORT INFORMATION
  Report Type: 
  Country: None (occurrence: None)
  Receive Date: 20100413
  Receipt Date: 20100401
  Transmission Date: 20101027
  Serious: Yes (Hospitalization)
  Sender: FDA-Public Use
  Company Number: FR-SANOFI-AVENTIS-2010SA018840

PATIENT
  Age: 56 Year
  Sex: Male

DRUGS (2)
  1. LOVENOX [Suspect]
     Indication: THROMBOSIS PROPHYLAXIS
     Route: 058
  2. AMOXICILLIN AND CLAVULANATE POTASSIUM [Concomitant]
     Indication: ERYSIPELAS
     Route: 048

REACTIONS (1)
  - PYODERMA GANGRENOSUM [None]
